FAERS Safety Report 4514311-2 (Version None)
Quarter: 2004Q4

REPORT INFORMATION
  Report Type: 
  Country: None (occurrence: None)
  Receive Date: 20041126
  Receipt Date: 20041118
  Transmission Date: 20050328
  Serious: Yes (Hospitalization)
  Sender: FDA-Public Use
  Company Number: 210535

PATIENT
  Age: 53 Year
  Sex: Female
  Weight: 49.9 kg

DRUGS (5)
  1. AVASTIN [Suspect]
     Indication: COLORECTAL CANCER METASTATIC
     Dosage: 250 MG, Q2W, INTRAVENOUS
     Route: 042
     Dates: start: 20040623
  2. OXALIPLATIN (OXALIPLATIN) [Concomitant]
  3. LEUCOVORIN CALCIUM [Concomitant]
  4. 5-FU (FLOUROURACIL) [Concomitant]
  5. ZOFRAN [Concomitant]

REACTIONS (15)
  - ABDOMINAL PAIN [None]
  - ANAEMIA [None]
  - ASCITES [None]
  - BLOOD GLUCOSE INCREASED [None]
  - BLOOD SODIUM DECREASED [None]
  - COLITIS [None]
  - DIARRHOEA [None]
  - HEPATOSPLENOMEGALY [None]
  - HYPERCALCAEMIA [None]
  - HYPOKALAEMIA [None]
  - HYPOTENSION [None]
  - JAUNDICE CHOLESTATIC [None]
  - NEUTROPHIL PERCENTAGE INCREASED [None]
  - PYREXIA [None]
  - TACHYCARDIA [None]
